FAERS Safety Report 6766375-3 (Version None)
Quarter: 2010Q2

REPORT INFORMATION
  Report Type: 
  Country: None (occurrence: None)
  Receive Date: 20100611
  Receipt Date: 20100602
  Transmission Date: 20101027
  Serious: Yes (Hospitalization)
  Sender: FDA-Public Use
  Company Number: GB-TYCO HEALTHCARE/MALLINCKRODT-T201001387

PATIENT
  Age: 28 Year
  Sex: Female

DRUGS (2)
  1. CONRAY [Suspect]
     Indication: HYSTEROSALPINGOGRAM
     Dosage: UNK
  2. METFORMIN [Concomitant]
     Indication: POLYCYSTIC OVARIES
     Dosage: 1500 MG, QD

REACTIONS (2)
  - ANAPHYLACTIC REACTION [None]
  - LEUKOPENIA [None]
